FAERS Safety Report 23387443 (Version 1)
Quarter: 2024Q1

REPORT INFORMATION
  Report Type: Spontaneous
  Country: US (occurrence: US)
  Receive Date: 20240110
  Receipt Date: 20240110
  Transmission Date: 20240410
  Serious: Yes (Death)
  Sender: FDA-Public Use
  Company Number: US-BAYER-2024A002395

PATIENT
  Age: 25 Year
  Sex: Male

DRUGS (4)
  1. ACETAMINOPHEN\DEXTROMETHORPHAN\PHENYLEPHRINE [Suspect]
     Active Substance: ACETAMINOPHEN\DEXTROMETHORPHAN\PHENYLEPHRINE
     Route: 048
  2. PHENYLEPHRINE [Suspect]
     Active Substance: PHENYLEPHRINE HYDROCHLORIDE
  3. DEXTROMETHORPHAN [Suspect]
     Active Substance: DEXTROMETHORPHAN
  4. DIPHENHYDRAMINE [Suspect]
     Active Substance: DIPHENHYDRAMINE

REACTIONS (2)
  - Drug abuse [Fatal]
  - Toxicity to various agents [Fatal]
